FAERS Safety Report 4890235-6 (Version None)
Quarter: 2006Q1

REPORT INFORMATION
  Report Type: 
  Country: None (occurrence: None)
  Receive Date: 20060124
  Receipt Date: 20051017
  Transmission Date: 20060701
  Serious: Yes (Hospitalization, Other)
  Sender: FDA-Public Use
  Company Number: US-MERCK-0510USA07625

PATIENT
  Age: 68 Year
  Sex: Female
  Weight: 91 kg

DRUGS (10)
  1. REGLAN [Concomitant]
     Route: 065
  2. LASIX [Concomitant]
     Indication: CARDIAC DISORDER
     Route: 065
  3. LASIX [Concomitant]
     Indication: SWELLING
     Route: 065
  4. VITAMIN D (UNSPECIFIED) [Concomitant]
     Route: 065
  5. CALCIUM (UNSPECIFIED) [Concomitant]
     Route: 065
  6. ASPIRIN [Concomitant]
     Route: 065
  7. VIOXX [Suspect]
     Indication: ARTHRITIS
     Route: 048
     Dates: start: 20000218, end: 20000601
  8. MIACALCIN [Concomitant]
     Indication: OSTEOPOROSIS
     Route: 055
  9. SYNTHROID [Concomitant]
     Indication: THYROID DISORDER
     Route: 065
  10. PRILOSEC [Concomitant]
     Indication: GASTROOESOPHAGEAL REFLUX DISEASE
     Route: 065

REACTIONS (10)
  - BLOOD THYROID STIMULATING HORMONE INCREASED [None]
  - BRADYCARDIA [None]
  - CHEST PAIN [None]
  - CONSTIPATION [None]
  - CORONARY ARTERY DISEASE [None]
  - HEADACHE [None]
  - HYPERTENSION [None]
  - MYOCARDIAL INFARCTION [None]
  - PARAESTHESIA [None]
  - SLEEP APNOEA SYNDROME [None]
